FAERS Safety Report 16319799 (Version 2)
Quarter: 2019Q2

REPORT INFORMATION
  Report Type: Spontaneous
  Country: PT (occurrence: PT)
  Receive Date: 20190516
  Receipt Date: 20190516
  Transmission Date: 20190711
  Serious: Yes (Hospitalization, Other)
  Sender: FDA-Public Use
  Company Number: PHHY2019PT109397

PATIENT
  Age: 47 Year
  Sex: Female

DRUGS (6)
  1. METHYLPREDNISOLONE. [Suspect]
     Active Substance: METHYLPREDNISOLONE
     Indication: APLASTIC ANAEMIA
     Dosage: UNK
     Route: 065
  2. CICLOSPORIN [Suspect]
     Active Substance: CYCLOSPORINE
     Indication: APLASTIC ANAEMIA
     Dosage: UNK
     Route: 065
  3. AMIKACIN SULFATE. [Suspect]
     Active Substance: AMIKACIN SULFATE
     Indication: KLEBSIELLA INFECTION
     Route: 065
  4. ANTITHYMOCYTE IMMUNOGLOBULIN (RABBIT) [Suspect]
     Active Substance: LAPINE T-LYMPHOCYTE IMMUNE GLOBULIN
     Indication: APLASTIC ANAEMIA
     Dosage: UNK
     Route: 065
  5. TIGECYCLINE. [Suspect]
     Active Substance: TIGECYCLINE
     Indication: KLEBSIELLA INFECTION
     Dosage: 200 MG LOADING DOSE,FOLLOWED BY 100 MG  Q12H
     Route: 065
  6. COLISTIN [Suspect]
     Active Substance: COLISTIN
     Indication: KLEBSIELLA INFECTION
     Dosage: 8 MU LOADING DOSE, FOLLOWED BY 4 MU Q12H
     Route: 065

REACTIONS (9)
  - Febrile neutropenia [Recovered/Resolved]
  - Drug resistance [Unknown]
  - Klebsiella bacteraemia [Recovered/Resolved]
  - Abscess limb [Recovered/Resolved]
  - Bone abscess [Recovered/Resolved]
  - Skin lesion [Recovered/Resolved]
  - Pyrexia [Recovered/Resolved]
  - Osteomyelitis bacterial [Recovered/Resolved]
  - Klebsiella infection [Recovered/Resolved]
